FAERS Safety Report 9324264 (Version 1)
Quarter: 2013Q2

REPORT INFORMATION
  Report Type: Spontaneous
  Country: GB (occurrence: GB)
  Receive Date: 20130603
  Receipt Date: 20130603
  Transmission Date: 20140414
  Serious: Yes (Other)
  Sender: FDA-Public Use
  Company Number: GB-TEVA-408786ISR

PATIENT
  Age: 74 Year
  Sex: Female
  Weight: 58.51 kg

DRUGS (10)
  1. SIMVASTATIN [Suspect]
     Indication: HYPERCHOLESTEROLAEMIA
     Dosage: 1 DOSAGE FORMS DAILY; TAKEN IN THE MORNING.
     Route: 048
  2. BEZAFIBRATE [Suspect]
     Indication: HYPERCHOLESTEROLAEMIA
     Dosage: 400 MILLIGRAM DAILY; TAKEN IN THE MORNING.
     Route: 048
  3. ATORVASTATIN [Suspect]
     Indication: HYPERCHOLESTEROLAEMIA
     Dosage: 10 MILLIGRAM DAILY; TAKEN IN THE MORNING.
     Route: 048
  4. PRAVASTATIN [Suspect]
     Indication: HYPERCHOLESTEROLAEMIA
     Dosage: 1 DOSAGE FORMS DAILY; TAKEN IN THE MORNING.
     Route: 048
  5. LIPITOR [Suspect]
     Indication: HYPERCHOLESTEROLAEMIA
     Dosage: 1 DOSAGE FORMS DAILY; TAKEN IN THE MORNING.
     Route: 048
  6. LEVOTHYROXINE SODIUM ANHYDROUS [Concomitant]
  7. BISOPROLOL FUMARATE [Concomitant]
  8. BENDROFLUMETHIAZIDE [Concomitant]
  9. CLOPIDOGREL HYDROCHLORIDE [Concomitant]
  10. LOSARTAN POTASSIUM [Concomitant]

REACTIONS (3)
  - Myalgia [Recovered/Resolved with Sequelae]
  - Nausea [Recovered/Resolved]
  - Vision blurred [Recovered/Resolved]
